FAERS Safety Report 4798368-X (Version None)
Quarter: 2005Q4

REPORT INFORMATION
  Report Type: 
  Country: None (occurrence: None)
  Receive Date: 20051014
  Receipt Date: 20050714
  Transmission Date: 20060501
  Serious: Yes (Death, Other)
  Sender: FDA-Public Use
  Company Number: 200516457GDDC

PATIENT
  Age: 50 Year
  Sex: Female

DRUGS (10)
  1. RIFATER [Suspect]
     Indication: TUBERCULOSIS
     Dosage: DOSE: 4 DAILY
     Route: 048
     Dates: start: 20050622, end: 20050623
  2. AUGMENTIN '125' [Concomitant]
     Indication: INFECTION
     Route: 042
     Dates: start: 20050612, end: 20050615
  3. IMOVANE [Concomitant]
     Indication: SOMNOLENCE
     Route: 048
     Dates: start: 20050613, end: 20050618
  4. STILNOX [Concomitant]
     Indication: SOMNOLENCE
     Route: 048
     Dates: start: 20050619, end: 20050622
  5. CIPROBAY [Concomitant]
     Indication: INFECTION
     Route: 042
     Dates: start: 20050615, end: 20050621
  6. INSULIN [Concomitant]
     Indication: DIABETES MELLITUS
     Route: 042
     Dates: start: 20050613, end: 20050626
  7. MAXOLON [Concomitant]
     Dates: start: 20050616, end: 20050622
  8. SYNAP FORTE [Concomitant]
     Dates: start: 20050619, end: 20050622
  9. PACKED BLOOD CELLS [Concomitant]
     Dates: start: 20050613
  10. LASIX [Concomitant]

REACTIONS (8)
  - ACIDOSIS [None]
  - COMPLEX PARTIAL SEIZURES [None]
  - CONFUSIONAL STATE [None]
  - CONVULSION [None]
  - LACTIC ACIDOSIS [None]
  - MUSCLE TWITCHING [None]
  - PULMONARY EMBOLISM [None]
  - PULMONARY OEDEMA [None]
